FAERS Safety Report 4510573-6 (Version None)
Quarter: 2004Q4

REPORT INFORMATION
  Report Type: 
  Country: None (occurrence: None)
  Receive Date: 20041119
  Receipt Date: 20041108
  Transmission Date: 20050328
  Serious: No
  Sender: FDA-Public Use
  Company Number: 2004-122288-NL

PATIENT
  Age: 31 Year
  Sex: Female

DRUGS (1)
  1. MENOTROPINS [Suspect]
     Indication: INFERTILITY

REACTIONS (3)
  - OVARIAN ENLARGEMENT [None]
  - OVARIAN HYPERSTIMULATION SYNDROME [None]
  - VULVAL OEDEMA [None]
